FAERS Safety Report 5771346-X (Version None)
Quarter: 2008Q2

REPORT INFORMATION
  Report Type: 
  Country: None (occurrence: None)
  Receive Date: 20080613
  Receipt Date: 20080604
  Transmission Date: 20081010
  Serious: Yes (Death, Hospitalization)
  Sender: FDA-Public Use
  Company Number: FR-JNJFOC-20080204675

PATIENT
  Age: 82 Year
  Sex: Male

DRUGS (8)
  1. TAVANIC [Suspect]
     Indication: RESPIRATORY DISTRESS
     Route: 042
  2. AUGMENTIN '125' [Suspect]
     Indication: RESPIRATORY DISTRESS
     Route: 042
  3. GENTAMICIN [Suspect]
     Indication: RESPIRATORY DISTRESS
     Route: 065
  4. TAZOCILLINE [Suspect]
     Indication: RESPIRATORY DISTRESS
     Route: 065
  5. VANCOMYCIN [Suspect]
     Indication: RESPIRATORY DISTRESS
     Route: 065
  6. SOLUPSAN [Concomitant]
     Route: 065
  7. TENORMIN [Concomitant]
     Indication: CARDIAC DISORDER
     Route: 065
  8. ELISOR [Concomitant]
     Indication: DYSLIPIDAEMIA
     Route: 065

REACTIONS (3)
  - ARRHYTHMIA [None]
  - HEPATITIS CHOLESTATIC [None]
  - PNEUMONIA ASPIRATION [None]
